FAERS Safety Report 10567322 (Version 2)
Quarter: 2014Q4

REPORT INFORMATION
  Report Type: Spontaneous
  Country: US (occurrence: US)
  Receive Date: 20141106
  Receipt Date: 20141126
  Transmission Date: 20150529
  Serious: Yes (Hospitalization)
  Sender: FDA-Public Use
  Company Number: US-MERCK-1411USA000744

PATIENT
  Age: 72 Year
  Sex: Female
  Weight: 104.31 kg

DRUGS (8)
  1. LORAZEPAM. [Concomitant]
     Active Substance: LORAZEPAM
  2. PLAVIX [Concomitant]
     Active Substance: CLOPIDOGREL BISULFATE
  3. HYDRALAZINE [Concomitant]
     Active Substance: HYDRALAZINE HYDROCHLORIDE
  4. ZETIA [Suspect]
     Active Substance: EZETIMIBE
     Indication: THROMBOSIS PROPHYLAXIS
     Dosage: UNK
     Route: 048
     Dates: start: 201307
  5. CLONAZEPAM. [Concomitant]
     Active Substance: CLONAZEPAM
  6. KLOR-CON [Concomitant]
     Active Substance: POTASSIUM CHLORIDE
  7. HALDOL [Concomitant]
     Active Substance: HALOPERIDOL
  8. DIOVAN [Concomitant]
     Active Substance: VALSARTAN

REACTIONS (12)
  - Myalgia [Unknown]
  - Abnormal behaviour [Unknown]
  - Urinary tract infection [Unknown]
  - Pain in extremity [Unknown]
  - Muscular weakness [Unknown]
  - Tremor [Unknown]
  - Product use issue [Unknown]
  - Visual acuity reduced [Unknown]
  - Gait disturbance [Unknown]
  - Anxiety [Unknown]
  - Affect lability [Unknown]
  - Fatigue [Unknown]

NARRATIVE: CASE EVENT DATE: 2013
